FAERS Safety Report 18766389 (Version 6)
Quarter: 2021Q2

REPORT INFORMATION
  Report Type: Spontaneous
  Country: JP (occurrence: JP)
  Receive Date: 20210121
  Receipt Date: 20210526
  Transmission Date: 20210717
  Serious: Yes (Death, Life-Threatening, Other)
  Sender: FDA-Public Use
  Company Number: JP-ABBVIE-21K-087-3740421-00

PATIENT
  Age: 82 Year
  Sex: Female
  Weight: 44.5 kg

DRUGS (41)
  1. HYDREA [Suspect]
     Active Substance: HYDROXYUREA
     Route: 048
     Dates: start: 20210101, end: 20210102
  2. AZACITIDINE. [Concomitant]
     Active Substance: AZACITIDINE
     Dates: start: 20190920
  3. AZACITIDINE. [Concomitant]
     Active Substance: AZACITIDINE
     Dates: start: 20191018
  4. AZACITIDINE. [Concomitant]
     Active Substance: AZACITIDINE
     Dates: start: 20191213
  5. AZACITIDINE. [Concomitant]
     Active Substance: AZACITIDINE
     Dates: start: 20201031
  6. CYTARABINE. [Concomitant]
     Active Substance: CYTARABINE
     Indication: PRODUCT USED FOR UNKNOWN INDICATION
     Dates: start: 20190115, end: 20190120
  7. RABEPRAZOLE SODIUM. [Concomitant]
     Active Substance: RABEPRAZOLE SODIUM
     Indication: PRODUCT USED FOR UNKNOWN INDICATION
     Route: 048
  8. HYDREA [Suspect]
     Active Substance: HYDROXYUREA
     Route: 048
     Dates: start: 20210103, end: 20210105
  9. AZACITIDINE. [Concomitant]
     Active Substance: AZACITIDINE
     Indication: PRODUCT USED FOR UNKNOWN INDICATION
     Dates: start: 20190628
  10. CYTARABINE. [Concomitant]
     Active Substance: CYTARABINE
     Indication: PRODUCT USED FOR UNKNOWN INDICATION
     Dosage: A SMALL AMOUNT
     Route: 041
     Dates: start: 20201211, end: 20201220
  11. CYTARABINE. [Concomitant]
     Active Substance: CYTARABINE
     Dates: start: 20190226
  12. GLIMEPIRIDE. [Concomitant]
     Active Substance: GLIMEPIRIDE
     Indication: PRODUCT USED FOR UNKNOWN INDICATION
     Route: 048
  13. CLOSTRIDIUM BUTYRICUM [Concomitant]
     Active Substance: CLOSTRIDIUM BUTYRICUM SPORES STRAIN M-55
     Indication: PRODUCT USED FOR UNKNOWN INDICATION
     Route: 048
  14. MAGNESIUM OXIDE. [Concomitant]
     Active Substance: MAGNESIUM OXIDE
     Indication: PRODUCT USED FOR UNKNOWN INDICATION
     Route: 048
  15. VENCLEXTA [Suspect]
     Active Substance: VENETOCLAX
     Route: 048
     Dates: start: 20201214, end: 20210105
  16. HYDREA [Suspect]
     Active Substance: HYDROXYUREA
     Indication: PRODUCT USED FOR UNKNOWN INDICATION
     Route: 048
     Dates: start: 20201229, end: 20201229
  17. AZACITIDINE. [Concomitant]
     Active Substance: AZACITIDINE
     Dates: start: 20191115
  18. AZACITIDINE. [Concomitant]
     Active Substance: AZACITIDINE
     Dates: start: 20200403
  19. CYTARABINE. [Concomitant]
     Active Substance: CYTARABINE
     Dates: start: 20200730
  20. CYTARABINE. [Concomitant]
     Active Substance: CYTARABINE
     Dates: start: 20201117, end: 2020
  21. FLUCONAZOLE. [Concomitant]
     Active Substance: FLUCONAZOLE
     Indication: PRODUCT USED FOR UNKNOWN INDICATION
     Route: 048
  22. TRAMADOL HYDROCHLORIDE AND ACETAMINOPHEN [Concomitant]
     Active Substance: ACETAMINOPHEN\TRAMADOL HYDROCHLORIDE
     Indication: PRODUCT USED FOR UNKNOWN INDICATION
     Route: 048
  23. FEBUXOSTAT. [Concomitant]
     Active Substance: FEBUXOSTAT
     Indication: PRODUCT USED FOR UNKNOWN INDICATION
     Route: 048
  24. VENCLEXTA [Suspect]
     Active Substance: VENETOCLAX
     Indication: ACUTE MYELOID LEUKAEMIA
     Route: 048
     Dates: start: 20201211, end: 20201211
  25. VENCLEXTA [Suspect]
     Active Substance: VENETOCLAX
     Route: 048
     Dates: start: 20201213, end: 20201213
  26. AZACITIDINE. [Concomitant]
     Active Substance: AZACITIDINE
     Dates: start: 20200110
  27. AZACITIDINE. [Concomitant]
     Active Substance: AZACITIDINE
     Dates: start: 20200529
  28. URSODEOXYCHOLIC ACID [Concomitant]
     Active Substance: URSODIOL
     Indication: PRODUCT USED FOR UNKNOWN INDICATION
     Route: 048
  29. AZACITIDINE. [Concomitant]
     Active Substance: AZACITIDINE
     Dates: start: 20190628
  30. CYTARABINE. [Concomitant]
     Active Substance: CYTARABINE
     Dates: start: 20200826
  31. SULFAMETHOXAZOLE AND TRIMETHOPRIM [Concomitant]
     Active Substance: SULFAMETHOXAZOLE\TRIMETHOPRIM
     Indication: PRODUCT USED FOR UNKNOWN INDICATION
     Route: 048
  32. VENCLEXTA [Suspect]
     Active Substance: VENETOCLAX
     Route: 048
     Dates: start: 20201212, end: 20201212
  33. AZACITIDINE. [Concomitant]
     Active Substance: AZACITIDINE
     Dates: start: 20190823
  34. AZACITIDINE. [Concomitant]
     Active Substance: AZACITIDINE
     Dates: start: 20200207
  35. AZACITIDINE. [Concomitant]
     Active Substance: AZACITIDINE
     Dates: start: 20200306
  36. AZACITIDINE. [Concomitant]
     Active Substance: AZACITIDINE
     Dates: start: 20200501
  37. CYTARABINE. [Concomitant]
     Active Substance: CYTARABINE
     Dates: start: 20200626
  38. CYTARABINE. [Concomitant]
     Active Substance: CYTARABINE
     Dates: start: 20201211, end: 20201220
  39. CYTARABINE. [Concomitant]
     Active Substance: CYTARABINE
     Dates: start: 20201008
  40. HYDREA [Suspect]
     Active Substance: HYDROXYUREA
     Route: 048
     Dates: start: 20210110, end: 20210112
  41. LEVOFLOXACIN HEMIHYDRATE [Concomitant]
     Active Substance: LEVOFLOXACIN
     Indication: PRODUCT USED FOR UNKNOWN INDICATION
     Route: 048

REACTIONS (5)
  - Myelosuppression [Unknown]
  - Acute myeloid leukaemia [Fatal]
  - Platelet count decreased [Recovering/Resolving]
  - Off label use [Unknown]
  - Nausea [Not Recovered/Not Resolved]

NARRATIVE: CASE EVENT DATE: 2020
